FAERS Safety Report 10090620 (Version 1)
Quarter: 2014Q2

REPORT INFORMATION
  Report Type: Spontaneous
  Country: US (occurrence: US)
  Receive Date: 20140421
  Receipt Date: 20140421
  Transmission Date: 20141212
  Serious: Yes (Hospitalization)
  Sender: FDA-Public Use
  Company Number: US-ELI_LILLY_AND_COMPANY-US201404003747

PATIENT
  Age: 36 Year
  Sex: Male

DRUGS (2)
  1. STRATTERA [Suspect]
     Indication: ATTENTION DEFICIT/HYPERACTIVITY DISORDER
     Dosage: 40MG/ UNK
     Dates: start: 200410
  2. STRATTERA [Suspect]
     Indication: ANGER
     Dosage: 80MG

REACTIONS (15)
  - Suicide attempt [Unknown]
  - Psychotic disorder [Not Recovered/Not Resolved]
  - Depression [Not Recovered/Not Resolved]
  - Hypersensitivity [Unknown]
  - Night sweats [Unknown]
  - Amnesia [Not Recovered/Not Resolved]
  - Anxiety [Unknown]
  - Tremor [Unknown]
  - Sensory disturbance [Unknown]
  - Hyperacusis [Unknown]
  - Dizziness [Unknown]
  - Panic attack [Unknown]
  - Thinking abnormal [Unknown]
  - Cognitive disorder [Not Recovered/Not Resolved]
  - Drug withdrawal syndrome [Unknown]
